FAERS Safety Report 4561252-0 (Version None)
Quarter: 2005Q1

REPORT INFORMATION
  Report Type: 
  Country: None (occurrence: None)
  Receive Date: 20050121
  Receipt Date: 20050110
  Transmission Date: 20050727
  Serious: Yes (Hospitalization)
  Sender: FDA-Public Use
  Company Number: T04-SWI-08295-01

PATIENT
  Age: 32 Year
  Sex: Female

DRUGS (6)
  1. ESCITALOPRAM OXALATE [Suspect]
     Dosage: 10 MG QD PO
     Route: 048
     Dates: start: 20030717
  2. CLOZAPINE [Suspect]
     Dosage: 300 MG QD PO
     Route: 048
     Dates: start: 20040123, end: 20040927
  3. CLOZAPINE [Suspect]
     Dosage: 275 MG QD PO
     Route: 048
     Dates: start: 20040928, end: 20041107
  4. CLOZAPINE [Suspect]
     Dosage: 287.5 MG QD PO
     Route: 048
     Dates: start: 20041108
  5. ORFIRIL (VALPROATE SODIUM) [Concomitant]
  6. MAGNESIOCARD (MAGNESIUM ASPARTATE HYDROCHLORIDE) [Concomitant]

REACTIONS (8)
  - ACOUSTIC NEUROMA [None]
  - ANTIPSYCHOTIC DRUG LEVEL ABOVE THERAPEUTIC [None]
  - ENCOPRESIS [None]
  - ENURESIS [None]
  - HYPERTONIC BLADDER [None]
  - INCONTINENCE [None]
  - THERAPY NON-RESPONDER [None]
  - URINARY TRACT INFECTION [None]
